FAERS Safety Report 19521942 (Version 2)
Quarter: 2021Q3

REPORT INFORMATION
  Report Type: Spontaneous
  Country: ES (occurrence: ES)
  Receive Date: 20210712
  Receipt Date: 20210728
  Transmission Date: 20211014
  Serious: Yes (Hospitalization, Other)
  Sender: FDA-Public Use
  Company Number: NVSC2021ES149016

PATIENT
  Age: 18 Year
  Sex: Female

DRUGS (1)
  1. ILARIS [Suspect]
     Active Substance: CANAKINUMAB
     Indication: FAMILIAL MEDITERRANEAN FEVER
     Dosage: 150 MG, EVERY 8 WEEK
     Route: 065

REACTIONS (3)
  - Pyrexia [Recovered/Resolved]
  - Off label use [Unknown]
  - Trichophytic granuloma [Recovering/Resolving]
